FAERS Safety Report 4663901-5 (Version None)
Quarter: 2005Q2

REPORT INFORMATION
  Report Type: 
  Country: None (occurrence: None)
  Receive Date: 20050511
  Receipt Date: 20050315
  Transmission Date: 20051028
  Serious: Yes (Other)
  Sender: FDA-Public Use
  Company Number: 379962

PATIENT
  Age: 49 Year
  Sex: Female
  Weight: 55.8 kg

DRUGS (3)
  1. PEGASYS [Suspect]
     Indication: HEPATITIS C
     Dosage: OTHER
     Route: 050
     Dates: start: 20040404, end: 20050301
  2. COPEGUS [Suspect]
     Indication: HEPATITIS C
     Dosage: ORAL
     Route: 048
     Dates: start: 20040404, end: 20050301
  3. XANAX [Concomitant]

REACTIONS (17)
  - ADVERSE EVENT [None]
  - AGGRESSION [None]
  - ANAEMIA [None]
  - ANOREXIA [None]
  - DEPRESSION [None]
  - DISTURBANCE IN ATTENTION [None]
  - EYE IRRITATION [None]
  - FATIGUE [None]
  - HEADACHE [None]
  - IMPATIENCE [None]
  - INSOMNIA [None]
  - MOOD SWINGS [None]
  - MYALGIA [None]
  - NAUSEA [None]
  - RASH [None]
  - SUICIDAL IDEATION [None]
  - WEIGHT DECREASED [None]
